FAERS Safety Report 8391513-9 (Version None)
Quarter: 2012Q2

REPORT INFORMATION
  Report Type: 
  Country: None (occurrence: None)
  Receive Date: 20120515
  Receipt Date: 20120501
  Transmission Date: 20120825
  Serious: Yes (Hospitalization)
  Sender: FDA-Public Use
  Company Number: ACO_30198_2012

PATIENT
  Age: 56 Year
  Sex: Male

DRUGS (13)
  1. QUINAPRIL HCL (QUINAPRIL HYDROCHLORIDE) [Concomitant]
  2. ACETAMINOPHEN [Concomitant]
  3. NAPROXEN (ALEVE) [Concomitant]
  4. VIT D (ERGOCALCIFEROL) [Concomitant]
  5. NEOCITRAN /00430301/ (ACETANILE, ASCORBIC ACID, PHENIRAMINE MELATE, PH [Concomitant]
  6. DOCUSATE SODIUM (DOCUSATE SODIUM) [Concomitant]
  7. FAMPYRA (DALFAMPRIDINE) TABLET [Suspect]
     Indication: MULTIPLE SCLEROSIS
     Dosage: ORAL
     Route: 048
     Dates: start: 20060324
  8. VIT C (ASCORBIC ACID) [Concomitant]
  9. FLOMAX [Concomitant]
  10. BACLOFEN [Concomitant]
  11. MANDELAMINE (METHENAMINE MANDELATE) [Concomitant]
  12. OXYBUTYNIN [Concomitant]
  13. WELLBUTRIN [Concomitant]

REACTIONS (8)
  - RED BLOOD CELL COUNT DECREASED [None]
  - FALL [None]
  - UHTHOFF'S PHENOMENON [None]
  - WHITE BLOOD CELL ANALYSIS INCREASED [None]
  - ESCHERICHIA INFECTION [None]
  - BALANCE DISORDER [None]
  - URINARY TRACT INFECTION [None]
  - GENERAL PHYSICAL HEALTH DETERIORATION [None]
